FAERS Safety Report 4605828-0 (Version None)
Quarter: 2005Q1

REPORT INFORMATION
  Report Type: 
  Country: None (occurrence: None)
  Receive Date: 20050311
  Receipt Date: 20050301
  Transmission Date: 20050727
  Serious: Yes (Other)
  Sender: FDA-Public Use
  Company Number: ES-AMGEN-UK118337

PATIENT
  Sex: Female

DRUGS (3)
  1. ARANESP [Suspect]
     Indication: ANAEMIA OF MALIGNANT DISEASE
     Route: 058
     Dates: start: 20041123, end: 20041130
  2. GLIBENCLAMIDE [Concomitant]
     Route: 048
  3. ENALAPRIL [Concomitant]
     Route: 048

REACTIONS (4)
  - DERMATITIS EXFOLIATIVE [None]
  - HYPERGLYCAEMIA [None]
  - HYPERSENSITIVITY [None]
  - TACHYCARDIA [None]
